FAERS Safety Report 9511901 (Version 1)
Quarter: 2013Q3

REPORT INFORMATION
  Report Type: Spontaneous
  Country: FR (occurrence: None)
  Receive Date: 20130906
  Receipt Date: 20130906
  Transmission Date: 20140515
  Serious: Yes (Hospitalization)
  Sender: FDA-Public Use
  Company Number: SYM-2013-10360

PATIENT
  Age: 64 Year
  Sex: Female

DRUGS (4)
  1. BUPROPION [Suspect]
     Indication: PRODUCT USED FOR UNKNOWN INDICATION
  2. ROPINIROLE [Suspect]
  3. FLUOXETINE (FLUOXETINE) (FLUOXETINE) [Suspect]
  4. TRAMADOL HYDROCHLORIDE (TRAMADOL HYDROCHLORIDE) (TRAMADOL HYDROCHLORIDE) [Concomitant]

REACTIONS (6)
  - Major depression [None]
  - Weight decreased [None]
  - Apathy [None]
  - Condition aggravated [None]
  - Drug withdrawal syndrome [None]
  - Restless legs syndrome [None]
